FAERS Safety Report 20548600 (Version 1)
Quarter: 2022Q1

REPORT INFORMATION
  Report Type: Spontaneous
  Country: US (occurrence: US)
  Receive Date: 20220303
  Receipt Date: 20220303
  Transmission Date: 20220424
  Serious: No
  Sender: FDA-Public Use
  Company Number: US-GILEAD-2022-0571906

PATIENT
  Age: 44 Year
  Sex: Female

DRUGS (12)
  1. EPCLUSA [Suspect]
     Active Substance: SOFOSBUVIR\VELPATASVIR
     Indication: Chronic hepatitis C
     Dosage: UNK
     Route: 065
  2. MINIPRESS [Concomitant]
     Active Substance: PRAZOSIN HYDROCHLORIDE
  3. ALLOPURINOL [Concomitant]
     Active Substance: ALLOPURINOL
  4. GABAPENTIN [Concomitant]
     Active Substance: GABAPENTIN
  5. NEURONTIN [Concomitant]
     Active Substance: GABAPENTIN
  6. HYOSCYAMINE [Concomitant]
     Active Substance: HYOSCYAMINE
  7. CLONIDINE [Concomitant]
     Active Substance: CLONIDINE
  8. METHADONE [Concomitant]
     Active Substance: METHADONE HYDROCHLORIDE
  9. SYNTHROID [Concomitant]
     Active Substance: LEVOTHYROXINE SODIUM
  10. UBRELVY [Concomitant]
     Active Substance: UBROGEPANT
  11. ALDACTONE [Concomitant]
     Active Substance: SPIRONOLACTONE
  12. MAXALT [Concomitant]
     Active Substance: RIZATRIPTAN BENZOATE

REACTIONS (2)
  - Abdominal pain [Unknown]
  - Vomiting [Unknown]
